FAERS Safety Report 16484412 (Version 1)
Quarter: 2019Q2

REPORT INFORMATION
  Report Type: Spontaneous
  Country: US (occurrence: US)
  Receive Date: 20190627
  Receipt Date: 20190627
  Transmission Date: 20190711
  Serious: Yes (Other)
  Sender: FDA-Public Use
  Company Number: US-MYLANLABS-2019M1060360

PATIENT
  Age: 59 Year
  Sex: Male

DRUGS (3)
  1. EPINEPHRINE. [Suspect]
     Active Substance: EPINEPHRINE
     Indication: NERVE BLOCK
     Dosage: THE MAN RECEIVED NERVE BLOCK WITH 10ML ALIQUOTS OF 0.5% BUPIVACAINE, MIXED WITH 1.0% EPINEPHRINE ...
     Route: 050
  2. BUPIVACAINE. [Suspect]
     Active Substance: BUPIVACAINE
     Indication: NERVE BLOCK
     Dosage: THE MAN RECEIVED NERVE BLOCK WITH 10ML ALIQUOTS OF 0.5% BUPIVACAINE, MIXED WITH 1.0% EPINEPHRINE ...
     Route: 050
  3. LIDOCAINE. [Suspect]
     Active Substance: LIDOCAINE
     Indication: NERVE BLOCK
     Dosage: THE MAN RECEIVED NERVE BLOCK WITH 10ML ALIQUOTS OF 0.5% BUPIVACAINE, MIXED WITH 1.0% EPINEPHRINE ...
     Route: 050

REACTIONS (3)
  - Anal injury [Recovering/Resolving]
  - Anal incontinence [Recovered/Resolved]
  - Anal sphincter atony [Recovering/Resolving]
